FAERS Safety Report 9554787 (Version 1)
Quarter: 2013Q3

REPORT INFORMATION
  Report Type: Spontaneous
  Country: US (occurrence: US)
  Receive Date: 20130926
  Receipt Date: 20130926
  Transmission Date: 20140515
  Serious: Yes (Hospitalization)
  Sender: FDA-Public Use
  Company Number: US-BIOGENIDEC-2013BI091242

PATIENT
  Age: 40 Year
  Sex: Female

DRUGS (1)
  1. AVONEX [Suspect]
     Indication: MULTIPLE SCLEROSIS
     Route: 030
     Dates: start: 20101214

REACTIONS (5)
  - Asthma [Not Recovered/Not Resolved]
  - Pneumonia [Unknown]
  - Bronchitis [Unknown]
  - Influenza like illness [Recovered/Resolved]
  - Muscular weakness [Not Recovered/Not Resolved]
